FAERS Safety Report 4998500-9 (Version None)
Quarter: 2006Q2

REPORT INFORMATION
  Report Type: 
  Country: None (occurrence: None)
  Receive Date: 20060508
  Receipt Date: 20060425
  Transmission Date: 20061013
  Serious: Yes (Life-Threatening)
  Sender: FDA-Public Use
  Company Number: 2006054795

PATIENT
  Age: 72 Year
  Sex: Male
  Weight: 75 kg

DRUGS (5)
  1. ZYVOXID [Suspect]
     Indication: INJURY
     Dosage: 1200 MG (600 MG, 2 IN 1 D), ORAL
     Route: 048
     Dates: start: 20051201, end: 20060327
  2. AMOXICILLIN TRIHYDRATE [Suspect]
     Indication: INJURY
     Dosage: 2250 MG (1 IN 1 D), ORAL
     Route: 048
     Dates: start: 20051201, end: 20060327
  3. ASPIRIN [Suspect]
     Indication: PERIPHERAL VASCULAR DISORDER
     Dosage: 100 MG (100 MG, 1 IN 1 D), ORAL
     Route: 048
     Dates: start: 20050101
  4. SELIPRAN (PRAVASTATIN SODIUM) [Concomitant]
  5. LISITRIL COMP. (LISINOPRIL) [Concomitant]

REACTIONS (9)
  - ANAEMIA [None]
  - GASTROINTESTINAL HAEMORRHAGE [None]
  - HAEMATEMESIS [None]
  - HYPOVOLAEMIC SHOCK [None]
  - PERIPHERAL VASCULAR DISORDER [None]
  - POST PROCEDURAL HAEMORRHAGE [None]
  - SEROMA [None]
  - THROMBOCYTOPENIA [None]
  - UPPER GASTROINTESTINAL HAEMORRHAGE [None]
